FAERS Safety Report 21032238 (Version 1)
Quarter: 2022Q3

REPORT INFORMATION
  Report Type: Spontaneous
  Country: BE (occurrence: BE)
  Receive Date: 20220701
  Receipt Date: 20220701
  Transmission Date: 20221027
  Serious: Yes (Hospitalization, Other)
  Sender: FDA-Public Use
  Company Number: BE-SA-2022SA245718

PATIENT
  Age: 80 Year
  Sex: Female

DRUGS (1)
  1. ENOXAPARIN SODIUM [Suspect]
     Active Substance: ENOXAPARIN SODIUM
     Indication: Atrial fibrillation

REACTIONS (12)
  - Retroperitoneal haematoma [Unknown]
  - Asthenia [Unknown]
  - Abdominal pain [Unknown]
  - Chills [Unknown]
  - Hyperhidrosis [Unknown]
  - Vomiting [Unknown]
  - Haemorrhage [Unknown]
  - Multisystem inflammatory syndrome [Unknown]
  - Pyrexia [Unknown]
  - Hyperleukocytosis [Unknown]
  - Hypovolaemic shock [Unknown]
  - Anaemia [Unknown]
